FAERS Safety Report 17086805 (Version 1)
Quarter: 2019Q4

REPORT INFORMATION
  Report Type: Spontaneous
  Country: US (occurrence: US)
  Receive Date: 20191128
  Receipt Date: 20191128
  Transmission Date: 20200122
  Serious: Yes (Hospitalization, Other)
  Sender: FDA-Public Use
  Company Number: US-CHEPLA-C20193100

PATIENT
  Age: 7 Year
  Sex: Male

DRUGS (4)
  1. ATEZOLIZUMAB. [Suspect]
     Active Substance: ATEZOLIZUMAB
     Indication: PANCREATIC CARCINOMA
     Dosage: GIVEN ON THE FIRST DAY OF EACH CYLE ( FOUR 21-DAYS CYCLES)
  2. ETOPOSIDE PHOSPHATE [Suspect]
     Active Substance: ETOPOSIDE PHOSPHATE
     Indication: PANCREATIC CARCINOMA
     Dosage: GIVEN ON DAYS 1-3 ( FOUR 21-DAY CYCLES)
  3. ATEZOLIZUMAB. [Suspect]
     Active Substance: ATEZOLIZUMAB
     Indication: PANCREATIC CARCINOMA
     Dosage: THE PATIENT CONTINUED MAINTENANCE ATEZOLIZUMAB EVERY 21 DAYS
  4. CARBOPLATIN. [Suspect]
     Active Substance: CARBOPLATIN
     Indication: PANCREATIC CARCINOMA
     Dosage: 5 AREA UNDER THE CURVE ON DAY 1 ( FOUR 21-DAYS CYCLES)

REACTIONS (7)
  - Electrolyte imbalance [Unknown]
  - Bone marrow failure [Unknown]
  - Coagulopathy [Unknown]
  - Disease progression [Unknown]
  - Fungal infection [Unknown]
  - Hyperbilirubinaemia [Unknown]
  - Product use in unapproved indication [Recovered/Resolved]
